FAERS Safety Report 22030201 (Version 1)
Quarter: 2023Q1

REPORT INFORMATION
  Report Type: Spontaneous
  Country: US (occurrence: None)
  Receive Date: 20230221
  Receipt Date: 20230221
  Transmission Date: 20230418
  Serious: Yes (Hospitalization)
  Sender: FDA-Public Use
  Company Number: None

PATIENT
  Age: 37 Year
  Sex: Male

DRUGS (1)
  1. HUMIRA [Suspect]
     Active Substance: ADALIMUMAB
     Route: 058

REACTIONS (4)
  - Hypokalaemia [None]
  - Hypoglycaemia [None]
  - Impaired gastric emptying [None]
  - Pancreatitis acute [None]

NARRATIVE: CASE EVENT DATE: 20230202
